FAERS Safety Report 5031983-7 (Version None)
Quarter: 2006Q2

REPORT INFORMATION
  Report Type: 
  Country: None (occurrence: None)
  Receive Date: 20060621
  Receipt Date: 20060611
  Transmission Date: 20061013
  Serious: Yes (Death, Other)
  Sender: FDA-Public Use
  Company Number: FR-ABBOTT-06P-056-0335871-00

PATIENT
  Sex: Male

DRUGS (2)
  1. KALETRA [Suspect]
     Indication: HIV INFECTION
     Route: 048
  2. TRUVADA [Concomitant]
     Indication: HIV INFECTION

REACTIONS (3)
  - BONE MARROW FAILURE [None]
  - DISSEMINATED LARGE CELL LYMPHOMA [None]
  - SEPSIS [None]
